FAERS Safety Report 22585198 (Version 3)
Quarter: 2024Q4

REPORT INFORMATION
  Report Type: Report from Study
  Country: PK (occurrence: PK)
  Receive Date: 20230609
  Receipt Date: 20241212
  Transmission Date: 20250115
  Serious: Yes (Other)
  Sender: NOVARTIS
  Company Number: PK-002147023-NVSC2023PK128926

PATIENT
  Age: 67 Year
  Sex: Male

DRUGS (7)
  1. SECUKINUMAB [Suspect]
     Active Substance: SECUKINUMAB
     Indication: Ankylosing spondylitis
     Dosage: 150 MG AFTER EVERY 6 WEEKS
     Route: 058
     Dates: start: 20210312, end: 202108
  2. SECUKINUMAB [Suspect]
     Active Substance: SECUKINUMAB
     Dosage: 150 MG AFTER EVERY 10 WEEKS
     Route: 058
     Dates: start: 20211029, end: 20220312
  3. SECUKINUMAB [Suspect]
     Active Substance: SECUKINUMAB
     Dosage: 150 MG AFTER EVERY 08 WEEKS
     Route: 058
     Dates: start: 20220312
  4. SECUKINUMAB [Suspect]
     Active Substance: SECUKINUMAB
     Dosage: 150 MG
     Route: 058
  5. SECUKINUMAB [Suspect]
     Active Substance: SECUKINUMAB
     Dosage: 150 MG AFTER 8 WEEKS TO 2.5 MONTHS
     Route: 058
     Dates: start: 20220518, end: 2023
  6. SECUKINUMAB [Suspect]
     Active Substance: SECUKINUMAB
     Dosage: 150 MG 1 INJ ONCE EVERY 2 MONTHS
     Route: 058
     Dates: start: 2023, end: 2023
  7. SECUKINUMAB [Suspect]
     Active Substance: SECUKINUMAB
     Dosage: 150 MG 1 INJ AS PER NEED
     Route: 058
     Dates: start: 2023

REACTIONS (6)
  - Ankylosing spondylitis [Not Recovered/Not Resolved]
  - Neck pain [Not Recovered/Not Resolved]
  - Back pain [Not Recovered/Not Resolved]
  - Arthralgia [Not Recovered/Not Resolved]
  - Diabetes mellitus [Unknown]
  - Inappropriate schedule of product administration [Unknown]

NARRATIVE: CASE EVENT DATE: 20230501
